FAERS Safety Report 8479622-7 (Version None)
Quarter: 2012Q2

REPORT INFORMATION
  Report Type: 
  Country: None (occurrence: None)
  Receive Date: 20120629
  Receipt Date: 20120627
  Transmission Date: 20120825
  Serious: No
  Sender: FDA-Public Use
  Company Number: US-PFIZER INC-2012155362

PATIENT
  Sex: Female
  Weight: 68.481 kg

DRUGS (1)
  1. PREMARIN [Suspect]
     Indication: ATROPHIC VULVOVAGINITIS
     Dosage: 0.625 MG, WEEKLY
     Route: 067
     Dates: start: 20120617

REACTIONS (2)
  - VULVOVAGINAL BURNING SENSATION [None]
  - DYSPAREUNIA [None]
